FAERS Safety Report 7615594-2 (Version None)
Quarter: 2011Q3

REPORT INFORMATION
  Report Type: 
  Country: None (occurrence: None)
  Receive Date: 20110708
  Receipt Date: 20110525
  Transmission Date: 20111222
  Serious: No
  Sender: FDA-Public Use
  Company Number: 2011IP000100

PATIENT
  Age: 18 Year
  Sex: Female

DRUGS (1)
  1. BEPREVE [Suspect]
     Indication: OFF LABEL USE
     Dosage: 1 GTT;QPM;OPH
     Route: 047
     Dates: start: 20110525

REACTIONS (1)
  - DYSGEUSIA [None]
